FAERS Safety Report 13125540 (Version 1)
Quarter: 2017Q1

REPORT INFORMATION
  Report Type: Spontaneous
  Country: GB (occurrence: GB)
  Receive Date: 20170118
  Receipt Date: 20170118
  Transmission Date: 20170428
  Serious: Yes (Other)
  Sender: FDA-Public Use
  Company Number: GB-JNJFOC-20170112847

PATIENT
  Age: 50 Year
  Sex: Female
  Weight: 114 kg

DRUGS (6)
  1. CANAGLIFLOZIN [Suspect]
     Active Substance: CANAGLIFLOZIN
     Indication: PRODUCT USED FOR UNKNOWN INDICATION
     Route: 048
     Dates: start: 20161017
  2. METFORMIN [Concomitant]
     Active Substance: METFORMIN HYDROCHLORIDE
     Route: 065
     Dates: start: 20111010
  3. RAMIPRIL. [Concomitant]
     Active Substance: RAMIPRIL
     Route: 065
     Dates: start: 20160511
  4. DAPAGLIFLOZIN [Concomitant]
     Active Substance: DAPAGLIFLOZIN
     Route: 065
     Dates: start: 20160511, end: 20161202
  5. ELLESTE-DUET [Concomitant]
     Route: 065
     Dates: start: 20150526
  6. CLOTRIAZOLE [Concomitant]
     Route: 065
     Dates: start: 20161012, end: 20161013

REACTIONS (1)
  - Diabetic foot infection [Recovered/Resolved with Sequelae]

NARRATIVE: CASE EVENT DATE: 20161017
